FAERS Safety Report 19906089 (Version 1)
Quarter: 2021Q3

REPORT INFORMATION
  Report Type: Spontaneous
  Country: US (occurrence: US)
  Receive Date: 20210930
  Receipt Date: 20210930
  Transmission Date: 20211014
  Serious: Yes (Other)
  Sender: FDA-Public Use
  Company Number: None

PATIENT
  Age: 47 Year
  Sex: Male
  Weight: 92.25 kg

DRUGS (2)
  1. IPECAC [Suspect]
     Active Substance: IPECAC
     Indication: SUBSTANCE USE DISORDER
     Dosage: ?          OTHER FREQUENCY:EVERY OTHER DAY;?
     Route: 048
     Dates: start: 20210809, end: 20210819
  2. IPECAC [Suspect]
     Active Substance: IPECAC
     Indication: SUBSTANCE USE DISORDER
     Dosage: ?          OTHER FREQUENCY:ONCE;?
     Route: 048
     Dates: start: 20210921, end: 20210921

REACTIONS (3)
  - Muscular weakness [None]
  - Pain [None]
  - Myopathy [None]

NARRATIVE: CASE EVENT DATE: 20210925
